FAERS Safety Report 8333027-8 (Version None)
Quarter: 2012Q2

REPORT INFORMATION
  Report Type: 
  Country: None (occurrence: None)
  Receive Date: 20120503
  Receipt Date: 20120424
  Transmission Date: 20120825
  Serious: Yes (Hospitalization, Other)
  Sender: FDA-Public Use
  Company Number: PHFR2011GB006911

PATIENT
  Sex: Male
  Weight: 108 kg

DRUGS (11)
  1. BISOPROLOL FUMARATE [Concomitant]
     Dosage: 7.5 MG, UNK
  2. WARFARIN SODIUM [Concomitant]
     Route: 048
  3. ALLOPURINOL [Concomitant]
     Dosage: 200 MG, UNK
     Route: 048
  4. NEBIVOLOL [Concomitant]
  5. ONBREZ [Suspect]
     Indication: CHRONIC OBSTRUCTIVE PULMONARY DISEASE
     Dates: start: 20111117, end: 20111128
  6. FUROSEMIDE [Concomitant]
  7. SILDENAFIL [Concomitant]
     Dosage: 50 MG, PRN
     Route: 048
  8. OMEPRAZOLE [Concomitant]
     Dosage: 40 MG, UNK
     Route: 048
  9. ALBUTEROL [Concomitant]
  10. TESTOTERONE [Concomitant]
     Route: 030
  11. IRBESARTAN [Concomitant]
     Dosage: 300 MG, UNK
     Route: 048

REACTIONS (11)
  - PLEURAL EFFUSION [None]
  - HEADACHE [None]
  - MUSCULAR WEAKNESS [None]
  - DYSPNOEA [None]
  - GAIT DISTURBANCE [None]
  - ORAL PAIN [None]
  - COUGH [None]
  - JOINT SWELLING [None]
  - OROPHARYNGEAL PAIN [None]
  - INTERNATIONAL NORMALISED RATIO INCREASED [None]
  - CHEST PAIN [None]
